FAERS Safety Report 12143979 (Version 1)
Quarter: 2016Q1

REPORT INFORMATION
  Report Type: Spontaneous
  Country: US (occurrence: US)
  Receive Date: 20160304
  Receipt Date: 20160304
  Transmission Date: 20160526
  Serious: No
  Sender: FDA-Public Use
  Company Number: US-JNJFOC-20160215557

PATIENT
  Sex: Female

DRUGS (2)
  1. WOMENS ROGAINE [Suspect]
     Active Substance: MINOXIDIL
     Indication: ALOPECIA
     Dosage: APPROXIMATEY 1.5 ML
     Route: 061
  2. WOMENS ROGAINE [Suspect]
     Active Substance: MINOXIDIL
     Route: 061

REACTIONS (5)
  - Drug ineffective [Unknown]
  - Off label use [Unknown]
  - Hair growth abnormal [Recovered/Resolved]
  - Incorrect dose administered [Unknown]
  - Inappropriate schedule of drug administration [Unknown]
